FAERS Safety Report 7464015-1 (Version None)
Quarter: 2011Q2

REPORT INFORMATION
  Report Type: 
  Country: None (occurrence: None)
  Receive Date: 20110506
  Receipt Date: 20110421
  Transmission Date: 20111010
  Serious: No
  Sender: FDA-Public Use
  Company Number: US-B.I. PHARMACEUTICALS,INC./RIDGEFIELD-2011-BP-02037BP

PATIENT
  Sex: Female

DRUGS (12)
  1. NEXIUM [Concomitant]
  2. ANTIOXIDANT FORMULA [Concomitant]
  3. PRADAXA [Suspect]
     Indication: CEREBROVASCULAR ACCIDENT
  4. CRESTOR [Concomitant]
  5. MELATONIN [Concomitant]
  6. CHEWABLE C [Concomitant]
  7. METOPROLOL SUCCINATE [Concomitant]
  8. METFORMIN [Concomitant]
     Dosage: 1000 MG
  9. HTP [Concomitant]
  10. VITAMIN D [Concomitant]
  11. DULCOLAX [Concomitant]
  12. PRADAXA [Suspect]
     Indication: ATRIAL FIBRILLATION
     Dosage: 300 MG
     Route: 048
     Dates: start: 20110105

REACTIONS (2)
  - ALOPECIA [None]
  - HEADACHE [None]
